FAERS Safety Report 20767787 (Version 1)
Quarter: 2022Q2

REPORT INFORMATION
  Report Type: Other
  Country: CA (occurrence: CA)
  Receive Date: 20220429
  Receipt Date: 20220429
  Transmission Date: 20220720
  Serious: Yes (Life-Threatening, Hospitalization, Other)
  Sender: FDA-Public Use
  Company Number: CA-APOTEX-2022AP006565

PATIENT
  Age: 39 Year
  Sex: Male

DRUGS (3)
  1. EMTRICITABINE\TENOFOVIR DISOPROXIL [Suspect]
     Active Substance: EMTRICITABINE\TENOFOVIR DISOPROXIL
     Indication: HIV infection
     Dosage: 1 DOSAGE FORM, QD, 1 EVERY 1 DAYS
     Route: 065
  2. NORVIR [Concomitant]
     Active Substance: RITONAVIR
     Indication: Product used for unknown indication
     Dosage: UNK
     Route: 065
  3. ATAZANAVIR [Concomitant]
     Active Substance: ATAZANAVIR
     Indication: Product used for unknown indication
     Dosage: UNK
     Route: 065

REACTIONS (2)
  - Haemodialysis [Recovering/Resolving]
  - Acute kidney injury [Recovering/Resolving]
